FAERS Safety Report 5403850-8 (Version None)
Quarter: 2007Q3

REPORT INFORMATION
  Report Type: 
  Country: None (occurrence: None)
  Receive Date: 20070802
  Receipt Date: 20070727
  Transmission Date: 20080115
  Serious: Yes (Other)
  Sender: FDA-Public Use
  Company Number: AU-AVENTIS-200716972GDDC

PATIENT
  Age: 71 Year
  Sex: Female

DRUGS (2)
  1. LANTUS [Suspect]
     Route: 058
     Dates: start: 20070605
  2. AUTOPEN INSULIN INJECTION PEN [Suspect]

REACTIONS (2)
  - GASTROINTESTINAL CARCINOMA [None]
  - HYPERGLYCAEMIA [None]
